FAERS Safety Report 7575126-4 (Version None)
Quarter: 2011Q2

REPORT INFORMATION
  Report Type: 
  Country: None (occurrence: None)
  Receive Date: 20110627
  Receipt Date: 20091122
  Transmission Date: 20111010
  Serious: Yes (Death, Hospitalization, Other)
  Sender: FDA-Public Use
  Company Number: US-BAYER-201039740NA

PATIENT
  Age: 77 Year
  Sex: Male
  Weight: 66 kg

DRUGS (16)
  1. TRASYLOL [Suspect]
     Indication: CARDIAC OPERATION
     Route: 042
     Dates: start: 20061117
  2. AMICAR [Concomitant]
     Dosage: 10 GRAM
     Route: 042
     Dates: start: 20061117
  3. TOPROL-XL [Concomitant]
     Dosage: 25 MG, QD
  4. MAGNESIUM [Concomitant]
     Dosage: 2 G
     Route: 042
     Dates: start: 20061117
  5. METOPROLOL TARTRATE [Concomitant]
     Dosage: 1 MG
     Route: 042
     Dates: start: 20061117
  6. ANCEF [Concomitant]
     Dosage: UNK
     Route: 042
     Dates: start: 20061117
  7. PROTAMINE SULFATE [Concomitant]
     Dosage: UNK
     Route: 042
     Dates: start: 20061117
  8. BENAZEPRIL HYDROCHLORIDE [Concomitant]
     Dosage: 20 MG, QD
  9. SIMVASTATIN [Concomitant]
     Dosage: 40 MG, QD
     Route: 048
  10. DIGOXIN [Concomitant]
     Dosage: 0.125 MG EVERY OTHER DAY
     Route: 048
  11. HYDROCODONE [Concomitant]
     Dosage: 5/500 MG, EVERY 4 HOURS AS NEEDED FOR PAIN
  12. ACETYLSALICYLIC ACID SRT [Concomitant]
     Dosage: 325 MG, QD
     Route: 048
  13. FENTANYL [Concomitant]
     Dosage: UNK
     Dates: start: 20061117
  14. LASIX [Concomitant]
     Dosage: 80 MG, BID
     Route: 048
  15. HEPARIN [Concomitant]
     Dosage: UNK
     Dates: start: 20061117
  16. NOREPINEPHRINE BITARTRATE [Concomitant]
     Dosage: UNK
     Dates: start: 20061117

REACTIONS (12)
  - DEATH [None]
  - RENAL IMPAIRMENT [None]
  - RENAL INJURY [None]
  - UNEVALUABLE EVENT [None]
  - EMOTIONAL DISTRESS [None]
  - RENAL FAILURE [None]
  - MULTI-ORGAN FAILURE [None]
  - PAIN [None]
  - FEAR [None]
  - ANXIETY [None]
  - STRESS [None]
  - INJURY [None]
